APPROVED DRUG PRODUCT: LODOSYN
Active Ingredient: CARBIDOPA
Strength: 25MG
Dosage Form/Route: TABLET;ORAL
Application: N017830 | Product #001 | TE Code: AB
Applicant: ATON PHARMA INC
Approved: Approved Prior to Jan 1, 1982 | RLD: Yes | RS: Yes | Type: RX